FAERS Safety Report 9708397 (Version 1)
Quarter: 2013Q4

REPORT INFORMATION
  Report Type: Spontaneous
  Country: IL (occurrence: IL)
  Receive Date: 20131125
  Receipt Date: 20131125
  Transmission Date: 20140711
  Serious: Yes (Death)
  Sender: FDA-Public Use
  Company Number: IL-ACTELION-A-CH2013-91792

PATIENT
  Sex: Male

DRUGS (2)
  1. TRACLEER [Suspect]
     Indication: PRODUCT USED FOR UNKNOWN INDICATION
     Route: 048
  2. SOLIRIS [Concomitant]

REACTIONS (1)
  - Heart valve replacement [Fatal]
